FAERS Safety Report 7584044-7 (Version None)
Quarter: 2011Q2

REPORT INFORMATION
  Report Type: 
  Country: None (occurrence: None)
  Receive Date: 20110531
  Receipt Date: 20101118
  Transmission Date: 20111010
  Serious: Yes (Hospitalization, Other)
  Sender: FDA-Public Use
  Company Number: 314950

PATIENT
  Age: 82 Year
  Sex: Female
  Weight: 63.9 kg

DRUGS (6)
  1. TOPROL-XL [Concomitant]
  2. SYNTHROID [Concomitant]
  3. DIGOXIN [Concomitant]
  4. VERAPAMIL [Concomitant]
  5. VAGIFEM [Suspect]
     Indication: PRODUCT USED FOR UNKNOWN INDICATION
     Dosage: 25 UG, VAGINAL
     Route: 067
     Dates: start: 20010401, end: 20100101
  6. COUMADIN [Concomitant]

REACTIONS (1)
  - ENDOMETRIAL CANCER [None]
